FAERS Safety Report 20317709 (Version 2)
Quarter: 2022Q2

REPORT INFORMATION
  Report Type: Other
  Country: US (occurrence: None)
  Receive Date: 20220110
  Receipt Date: 20220511
  Transmission Date: 20220721
  Serious: Yes (Hospitalization, Other)
  Sender: FDA-Public Use
  Company Number: US-ROCHE-2993386

PATIENT
  Sex: Female

DRUGS (14)
  1. OCREVUS [Suspect]
     Active Substance: OCRELIZUMAB
     Indication: Primary progressive multiple sclerosis
     Dosage: 300MG ON DAY1 AND DAY 15, 600MG EVERY 6 MONTHS
     Route: 065
     Dates: start: 20200323, end: 20200923
  2. FOSAMAX [Concomitant]
     Active Substance: ALENDRONATE SODIUM
     Route: 048
  3. ARMODAFINIL [Concomitant]
     Active Substance: ARMODAFINIL
     Route: 048
  4. LIPITOR [Concomitant]
     Active Substance: ATORVASTATIN CALCIUM
  5. VITAMIN B COMPLEX [Concomitant]
     Active Substance: CYANOCOBALAMIN\DEXPANTHENOL\NIACINAMIDE\PYRIDOXINE HYDROCHLORIDE\RIBOFLAVIN 5^-PHOSPHATE SODIUM\THIA
     Route: 048
  6. LIORESAL [Concomitant]
     Active Substance: BACLOFEN
     Route: 048
  7. VITAMIN D3 [Concomitant]
     Active Substance: CHOLECALCIFEROL
     Route: 048
  8. FLEXERIL [Concomitant]
     Active Substance: CYCLOBENZAPRINE HYDROCHLORIDE
     Route: 048
  9. FERGON [Concomitant]
     Active Substance: FERROUS GLUCONATE
     Route: 048
  10. GABAPENTIN [Concomitant]
     Active Substance: GABAPENTIN
     Route: 048
  11. LISINOPRIL [Concomitant]
     Active Substance: LISINOPRIL
  12. ATORVASTATIN [Concomitant]
     Active Substance: ATORVASTATIN
  13. CYCLOBENZAPRINE [Concomitant]
     Active Substance: CYCLOBENZAPRINE
  14. FERROUS GLUCONATE [Concomitant]
     Active Substance: FERROUS GLUCONATE

REACTIONS (30)
  - Skin ulcer [Not Recovered/Not Resolved]
  - Sepsis [Recovered/Resolved]
  - Immobile [Not Recovered/Not Resolved]
  - Pruritus [Not Recovered/Not Resolved]
  - Injection site reaction [Unknown]
  - Hemiparesis [Unknown]
  - Muscle spasticity [Unknown]
  - Muscle spasms [Unknown]
  - Rash [Unknown]
  - Urinary hesitation [Unknown]
  - Rectal haemorrhage [Unknown]
  - Fibromyalgia [Unknown]
  - Pain [Unknown]
  - Osteoporosis [Unknown]
  - Onychomycosis [Unknown]
  - Anxiety [Unknown]
  - Depression [Unknown]
  - Ureterolithiasis [Unknown]
  - Mobility decreased [Unknown]
  - Hyperlipidaemia [Unknown]
  - Fatigue [Unknown]
  - Gait disturbance [Unknown]
  - Essential hypertension [Unknown]
  - Deep vein thrombosis [Unknown]
  - Colitis [Unknown]
  - Acute kidney injury [Unknown]
  - Abdominal pain [Unknown]
  - Pulmonary contusion [Unknown]
  - Condition aggravated [Unknown]
  - Adenoma benign [Unknown]

NARRATIVE: CASE EVENT DATE: 20210101
